FAERS Safety Report 17873735 (Version 2)
Quarter: 2020Q3

REPORT INFORMATION
  Report Type: Report from Study
  Country: US (occurrence: US)
  Receive Date: 20200609
  Receipt Date: 20200722
  Transmission Date: 20201103
  Serious: Yes (Hospitalization)
  Sender: FDA-Public Use
  Company Number: US-GILEAD-2020-0470714

PATIENT
  Age: 20 Year
  Sex: Female

DRUGS (1)
  1. AZTREONAM LYSINE [Suspect]
     Active Substance: AZTREONAM LYSINE
     Indication: BRONCHIECTASIS
     Dosage: 75 MG, TID, 28 DYAS ON 28 DAYS OFF
     Route: 055
     Dates: start: 201810

REACTIONS (3)
  - Respiratory disorder [Recovering/Resolving]
  - Off label use [Not Recovered/Not Resolved]
  - Haemoptysis [Recovering/Resolving]
